FAERS Safety Report 4932859-3 (Version None)
Quarter: 2006Q1

REPORT INFORMATION
  Report Type: 
  Country: None (occurrence: None)
  Receive Date: 20060301
  Receipt Date: 20060301
  Transmission Date: 20060701
  Serious: Yes (Life-Threatening, Hospitalization, Disabling)
  Sender: FDA-Public Use
  Company Number: None

PATIENT
  Age: 45 Year
  Sex: Female
  Weight: 95 kg

DRUGS (4)
  1. ORTHO-NOVUM [Suspect]
     Indication: ORAL CONTRACEPTION
     Dosage: 1 DAILY PO
     Route: 048
  2. LEXAPRO [Concomitant]
  3. SEROQUEL [Concomitant]
  4. TORADOL [Concomitant]

REACTIONS (1)
  - PORTAL VEIN THROMBOSIS [None]
